FAERS Safety Report 8277655-7 (Version None)
Quarter: 2012Q2

REPORT INFORMATION
  Report Type: 
  Country: None (occurrence: None)
  Receive Date: 20120412
  Receipt Date: 20120409
  Transmission Date: 20120825
  Serious: No
  Sender: FDA-Public Use
  Company Number: US-PFIZER INC-2012089205

PATIENT
  Sex: Female
  Weight: 68.027 kg

DRUGS (4)
  1. LYRICA [Suspect]
     Indication: BACK PAIN
     Dosage: 50 MG, 3X/DAY
     Dates: start: 20120408
  2. GABAPENTIN [Suspect]
     Indication: PARAESTHESIA
  3. PRAVASTATIN [Concomitant]
     Indication: BLOOD CHOLESTEROL INCREASED
     Dosage: 10 MG, DAILY
  4. GABAPENTIN [Suspect]
     Indication: HYPOAESTHESIA
     Dosage: 300 MG, 2X/DAY

REACTIONS (10)
  - SOMNOLENCE [None]
  - HEADACHE [None]
  - DRUG INTOLERANCE [None]
  - FEELING ABNORMAL [None]
  - DYSARTHRIA [None]
  - MALAISE [None]
  - CIRCUMSTANCE OR INFORMATION CAPABLE OF LEADING TO MEDICATION ERROR [None]
  - FRUSTRATION [None]
  - DIZZINESS [None]
  - ASTHENIA [None]
